FAERS Safety Report 18470771 (Version 1)
Quarter: 2020Q4

REPORT INFORMATION
  Report Type: Spontaneous
  Country: US (occurrence: US)
  Receive Date: 20201105
  Receipt Date: 20201105
  Transmission Date: 20210114
  Serious: No
  Sender: FDA-Public Use
  Company Number: US-TEIKOKU PHARMA USA-TPU2020-00841

PATIENT
  Age: 90 Year
  Sex: Male

DRUGS (2)
  1. LIDOCAINE PATCH [Suspect]
     Active Substance: LIDOCAINE
     Indication: PRODUCT USED FOR UNKNOWN INDICATION
  2. US LONGEVITY INSTITUTE [Concomitant]
     Indication: MEMORY IMPAIRMENT

REACTIONS (1)
  - Memory impairment [Not Recovered/Not Resolved]
